FAERS Safety Report 20686050 (Version 1)
Quarter: 2022Q2

REPORT INFORMATION
  Report Type: Spontaneous
  Country: US (occurrence: US)
  Receive Date: 20220407
  Receipt Date: 20220407
  Transmission Date: 20220721
  Serious: No
  Sender: FDA-Public Use
  Company Number: US-JAZZ-2021-US-022561

PATIENT
  Age: 23 Year
  Sex: Female

DRUGS (6)
  1. SUNOSI [Suspect]
     Active Substance: SOLRIAMFETOL
     Indication: Narcolepsy
     Dosage: 1 DOSAGE FORM, QD
     Route: 048
  2. SUNOSI [Suspect]
     Active Substance: SOLRIAMFETOL
     Indication: Cataplexy
  3. MIRENA ESS-STEEM [Concomitant]
     Dosage: UNK
     Dates: start: 20210301
  4. ENLYTE [Concomitant]
     Active Substance: CALCIUM ASCORBATE\CALCIUM THREONATE\COBALAMIN\COCARBOXYLASE\FERROUS GLUCONATE\FISH OIL\FLAVIN ADENIN
     Dosage: UNK
     Dates: start: 20210301
  5. ALLEGRA ALLERGY [Concomitant]
     Active Substance: FEXOFENADINE HYDROCHLORIDE
     Dosage: UNK
     Dates: start: 20210101
  6. ALBUTEROL SULFATE [Concomitant]
     Active Substance: ALBUTEROL SULFATE
     Dosage: UNK
     Dates: start: 20100101

REACTIONS (1)
  - Pyrexia [Unknown]

NARRATIVE: CASE EVENT DATE: 20211102
